FAERS Safety Report 8978287 (Version 1)
Quarter: 2012Q4

REPORT INFORMATION
  Report Type: 
  Country: IT (occurrence: IT)
  Receive Date: 20121220
  Receipt Date: 20121220
  Transmission Date: 20130627
  Serious: Yes (Hospitalization)
  Sender: FDA-Public Use
  Company Number: IT-WATSON-2012-22472

PATIENT
  Age: 32 Year
  Sex: Female

DRUGS (4)
  1. CHLORPROMAZINE HYDROCHLORIDE [Suspect]
     Indication: BIPOLAR II DISORDER
     Dosage: daily dose unknown  overdose with 150 mg, total
     Route: 048
     Dates: start: 20121128, end: 20121128
  2. BUPROPION HYDROCHLORIDE (WATSON LABORATORIES) [Suspect]
     Indication: BIPOLAR II DISORDER
     Dosage: daily dose unknown - overdose with 450 mg, total
     Route: 048
     Dates: start: 20121128, end: 20121128
  3. ALPRAZOLAM (UNKNOWN) [Suspect]
     Indication: BIPOLAR II DISORDER
     Dosage: daily dose unknown, overdose with 1 g, tatal
     Route: 048
     Dates: start: 20121128, end: 20121128
  4. LAMOTRIGINE (UNKNOWN) [Suspect]
     Indication: BIPOLAR II DISORDER
     Dosage: daily dose unknown , overdose with 300 mg, total
     Route: 048
     Dates: start: 20121128, end: 20121128

REACTIONS (3)
  - Psychomotor skills impaired [Unknown]
  - Intentional drug misuse [Unknown]
  - Overdose [Unknown]
